FAERS Safety Report 5249319-5 (Version None)
Quarter: 2007Q1

REPORT INFORMATION
  Report Type: 
  Country: None (occurrence: None)
  Receive Date: 20070228
  Receipt Date: 20070214
  Transmission Date: 20070707
  Serious: Yes (Other)
  Sender: FDA-Public Use
  Company Number: US-AMGEN-STX211408

PATIENT
  Sex: Female

DRUGS (2)
  1. ENBREL [Suspect]
     Indication: RHEUMATOID ARTHRITIS
     Route: 058
     Dates: start: 20061223
  2. METHOTREXATE [Concomitant]
     Route: 048
     Dates: start: 20060201

REACTIONS (3)
  - BLOOD URINE PRESENT [None]
  - NEPHROLITHIASIS [None]
  - POLLAKIURIA [None]
